FAERS Safety Report 19895563 (Version 1)
Quarter: 2021Q3

REPORT INFORMATION
  Report Type: Spontaneous
  Country: US (occurrence: US)
  Receive Date: 20210929
  Receipt Date: 20210929
  Transmission Date: 20211014
  Serious: No
  Sender: FDA-Public Use
  Company Number: US-SAREPTA THERAPEUTICS INC.-SRP2021-001581

PATIENT
  Age: 10 Year
  Sex: Male
  Weight: 28.93 kg

DRUGS (5)
  1. EXONDYS 51 [Suspect]
     Active Substance: ETEPLIRSEN
     Dosage: 900 MILLIGRAM, WEEKLY
     Dates: start: 20210804
  2. EMFLAZA [Concomitant]
     Active Substance: DEFLAZACORT
     Indication: STEROID THERAPY
     Dosage: 18 MILLIGRAM, QD
     Route: 048
     Dates: start: 20200117
  3. EXONDYS 51 [Suspect]
     Active Substance: ETEPLIRSEN
     Indication: DUCHENNE MUSCULAR DYSTROPHY
     Dosage: 900 MILLIGRAM, WEEKLY
     Dates: start: 20190829, end: 20210706
  4. VITAMIN D3 [Concomitant]
     Active Substance: CHOLECALCIFEROL
     Indication: SUPPLEMENTATION THERAPY
     Dosage: 2000 U, BID
     Route: 048
  5. ANTACID [CALCIUM CARBONATE] [Concomitant]
     Active Substance: CALCIUM CARBONATE
     Indication: ABDOMINAL DISCOMFORT
     Dosage: 750 MILLIGRAM, PRN
     Route: 048
     Dates: start: 20200117

REACTIONS (2)
  - Product dose omission issue [Unknown]
  - COVID-19 [Not Recovered/Not Resolved]

NARRATIVE: CASE EVENT DATE: 202107
